FAERS Safety Report 5571953-3 (Version None)
Quarter: 2007Q4

REPORT INFORMATION
  Report Type: 
  Country: None (occurrence: None)
  Receive Date: 20071221
  Receipt Date: 20071214
  Transmission Date: 20080405
  Serious: Yes (Hospitalization)
  Sender: FDA-Public Use
  Company Number: FR-ABBOTT-03P-056-0209988-00

PATIENT
  Age: 83 Year
  Sex: Male
  Weight: 65 kg

DRUGS (8)
  1. ZECLAR TABLETS [Suspect]
     Indication: DRUG USE FOR UNKNOWN INDICATION
     Route: 048
  2. CARBAMAZEPINE [Interacting]
     Route: 048
     Dates: end: 20030108
  3. ALLOPURINOL [Concomitant]
     Route: 048
  4. AMOXICILLIN [Concomitant]
     Indication: HELICOBACTER INFECTION
     Route: 048
  5. ACEBUTOLOL [Concomitant]
     Route: 048
  6. LANSOPRAZOLE [Concomitant]
     Indication: HELICOBACTER INFECTION
     Route: 048
  7. EUPHYTOSE [Concomitant]
     Route: 048
  8. NIFEDIPINE [Concomitant]
     Route: 048

REACTIONS (6)
  - CONFUSIONAL STATE [None]
  - DRUG INTERACTION [None]
  - GASTRIC ULCER HELICOBACTER [None]
  - HYPONATRAEMIA [None]
  - MOTOR DYSFUNCTION [None]
  - OVERDOSE [None]
